FAERS Safety Report 25743194 (Version 1)
Quarter: 2025Q3

REPORT INFORMATION
  Report Type: Spontaneous
  Country: EU (occurrence: EU)
  Receive Date: 20250830
  Receipt Date: 20250830
  Transmission Date: 20251020
  Serious: Yes (Other)
  Sender: ACCORD
  Company Number: None

PATIENT
  Age: 77 Year
  Sex: Female
  Weight: 63 kg

DRUGS (74)
  1. OXALIPLATIN [Suspect]
     Active Substance: OXALIPLATIN
     Indication: Adenocarcinoma pancreas
     Dates: start: 20240506, end: 20240506
  2. IRINOTECAN [Suspect]
     Active Substance: IRINOTECAN
     Indication: Adenocarcinoma pancreas
     Dates: start: 20240527, end: 20240527
  3. FLUOROURACIL [Concomitant]
     Active Substance: FLUOROURACIL
     Indication: Adenocarcinoma pancreas
     Dates: start: 20240506, end: 20240508
  4. LEVOLEUCOVORIN [Concomitant]
     Active Substance: LEVOLEUCOVORIN
     Indication: Adenocarcinoma pancreas
     Dates: start: 20240506, end: 20240506
  5. APREPITANT [Concomitant]
     Active Substance: APREPITANT
     Indication: Chemotherapy side effect prophylaxis
     Dates: start: 20240506, end: 20240506
  6. METHYLPREDNISOLONE [Concomitant]
     Active Substance: METHYLPREDNISOLONE
     Indication: Chemotherapy side effect prophylaxis
     Dates: start: 20240506, end: 20240506
  7. ONDANSETRON [Concomitant]
     Active Substance: ONDANSETRON
     Indication: Chemotherapy side effect prophylaxis
     Dates: start: 20240506, end: 20240506
  8. ATROPINE [Concomitant]
     Active Substance: ATROPINE
     Indication: Chemotherapy side effect prophylaxis
     Dates: start: 20240506, end: 20240506
  9. HUMALOG [Concomitant]
     Active Substance: INSULIN LISPRO
     Indication: Type 1 diabetes mellitus
     Dates: start: 202404
  10. LEVEMIR [Concomitant]
     Active Substance: INSULIN DETEMIR
     Indication: Type 1 diabetes mellitus
     Dates: start: 202404
  11. FLUOROURACIL [Concomitant]
     Active Substance: FLUOROURACIL
     Indication: Adenocarcinoma pancreas
     Dates: start: 20240527, end: 20240529
  12. FLUOROURACIL [Concomitant]
     Active Substance: FLUOROURACIL
     Indication: Adenocarcinoma pancreas
     Dates: start: 20240610, end: 20240612
  13. FLUOROURACIL [Concomitant]
     Active Substance: FLUOROURACIL
     Indication: Adenocarcinoma pancreas
     Dates: start: 20240524, end: 20240526
  14. FLUOROURACIL [Concomitant]
     Active Substance: FLUOROURACIL
     Indication: Adenocarcinoma pancreas
     Dates: start: 20240730, end: 20240801
  15. FLUOROURACIL [Concomitant]
     Active Substance: FLUOROURACIL
     Indication: Adenocarcinoma pancreas
     Dates: start: 20240820, end: 20240822
  16. FLUOROURACIL [Concomitant]
     Active Substance: FLUOROURACIL
     Indication: Adenocarcinoma pancreas
     Dates: start: 20240924, end: 20240926
  17. FLUOROURACIL [Concomitant]
     Active Substance: FLUOROURACIL
     Indication: Adenocarcinoma pancreas
     Dates: start: 20240506, end: 20240808
  18. LEVOLEUCOVORIN [Concomitant]
     Active Substance: LEVOLEUCOVORIN
     Indication: Adenocarcinoma pancreas
     Dates: start: 20240527, end: 20240527
  19. LEVOLEUCOVORIN [Concomitant]
     Active Substance: LEVOLEUCOVORIN
     Indication: Adenocarcinoma pancreas
     Dates: start: 20240610, end: 20240610
  20. LEVOLEUCOVORIN [Concomitant]
     Active Substance: LEVOLEUCOVORIN
     Indication: Adenocarcinoma pancreas
     Dates: start: 20240624, end: 20240624
  21. LEVOLEUCOVORIN [Concomitant]
     Active Substance: LEVOLEUCOVORIN
     Indication: Adenocarcinoma pancreas
     Dates: start: 20240730, end: 20240730
  22. LEVOLEUCOVORIN [Concomitant]
     Active Substance: LEVOLEUCOVORIN
     Indication: Adenocarcinoma pancreas
     Dates: start: 20240820, end: 20240820
  23. LEVOLEUCOVORIN [Concomitant]
     Active Substance: LEVOLEUCOVORIN
     Indication: Adenocarcinoma pancreas
     Dates: start: 20240924, end: 20240924
  24. LEVOLEUCOVORIN [Concomitant]
     Active Substance: LEVOLEUCOVORIN
     Indication: Adenocarcinoma pancreas
     Dates: start: 20241008, end: 20241008
  25. APREPITANT [Concomitant]
     Active Substance: APREPITANT
     Indication: Chemotherapy side effect prophylaxis
     Dates: start: 20240507, end: 20240508
  26. APREPITANT [Concomitant]
     Active Substance: APREPITANT
     Indication: Chemotherapy side effect prophylaxis
     Dates: start: 20240527, end: 20240527
  27. APREPITANT [Concomitant]
     Active Substance: APREPITANT
     Indication: Chemotherapy side effect prophylaxis
     Dates: start: 20240528, end: 20240529
  28. APREPITANT [Concomitant]
     Active Substance: APREPITANT
     Indication: Chemotherapy side effect prophylaxis
     Dates: start: 20240610, end: 20240610
  29. APREPITANT [Concomitant]
     Active Substance: APREPITANT
     Indication: Chemotherapy side effect prophylaxis
     Dates: start: 20240611, end: 20240612
  30. APREPITANT [Concomitant]
     Active Substance: APREPITANT
     Indication: Chemotherapy side effect prophylaxis
     Dates: start: 20240624, end: 20240624
  31. APREPITANT [Concomitant]
     Active Substance: APREPITANT
     Indication: Chemotherapy side effect prophylaxis
     Dates: start: 20240625, end: 20240626
  32. APREPITANT [Concomitant]
     Active Substance: APREPITANT
     Indication: Chemotherapy side effect prophylaxis
     Dates: start: 20240730, end: 20240730
  33. APREPITANT [Concomitant]
     Active Substance: APREPITANT
     Indication: Chemotherapy side effect prophylaxis
     Dates: start: 20240731, end: 20240801
  34. APREPITANT [Concomitant]
     Active Substance: APREPITANT
     Indication: Chemotherapy side effect prophylaxis
     Dates: start: 20240820, end: 20240820
  35. APREPITANT [Concomitant]
     Active Substance: APREPITANT
     Indication: Chemotherapy side effect prophylaxis
     Dates: start: 20240821, end: 20240822
  36. APREPITANT [Concomitant]
     Active Substance: APREPITANT
     Indication: Chemotherapy side effect prophylaxis
     Dates: start: 20240924, end: 20240924
  37. APREPITANT [Concomitant]
     Active Substance: APREPITANT
     Indication: Chemotherapy side effect prophylaxis
     Dates: start: 20240925, end: 20240926
  38. APREPITANT [Concomitant]
     Active Substance: APREPITANT
     Indication: Chemotherapy side effect prophylaxis
     Dates: start: 20241008, end: 20241008
  39. APREPITANT [Concomitant]
     Active Substance: APREPITANT
     Indication: Chemotherapy side effect prophylaxis
     Dates: start: 20241009, end: 20241010
  40. METHYLPREDNISOLONE [Concomitant]
     Active Substance: METHYLPREDNISOLONE
     Indication: Chemotherapy side effect prophylaxis
     Dates: start: 20240527, end: 20240527
  41. METHYLPREDNISOLONE [Concomitant]
     Active Substance: METHYLPREDNISOLONE
     Indication: Chemotherapy side effect prophylaxis
     Dates: start: 20240610, end: 20240610
  42. METHYLPREDNISOLONE [Concomitant]
     Active Substance: METHYLPREDNISOLONE
     Indication: Chemotherapy side effect prophylaxis
     Dates: start: 20240624, end: 20240624
  43. METHYLPREDNISOLONE [Concomitant]
     Active Substance: METHYLPREDNISOLONE
     Indication: Chemotherapy side effect prophylaxis
     Dates: start: 20240730, end: 20240730
  44. METHYLPREDNISOLONE [Concomitant]
     Active Substance: METHYLPREDNISOLONE
     Indication: Chemotherapy side effect prophylaxis
     Dates: start: 20240820, end: 20240820
  45. METHYLPREDNISOLONE [Concomitant]
     Active Substance: METHYLPREDNISOLONE
     Indication: Chemotherapy side effect prophylaxis
     Dates: start: 20240924, end: 20240924
  46. METHYLPREDNISOLONE [Concomitant]
     Active Substance: METHYLPREDNISOLONE
     Indication: Chemotherapy side effect prophylaxis
     Dates: start: 20241008, end: 20241008
  47. ONDANSETRON [Concomitant]
     Active Substance: ONDANSETRON
     Indication: Chemotherapy side effect prophylaxis
     Dates: start: 20240527, end: 20240527
  48. ONDANSETRON [Concomitant]
     Active Substance: ONDANSETRON
     Indication: Chemotherapy side effect prophylaxis
     Dates: start: 20240610, end: 20240610
  49. ONDANSETRON [Concomitant]
     Active Substance: ONDANSETRON
     Indication: Chemotherapy side effect prophylaxis
     Dates: start: 20240624, end: 20240624
  50. ONDANSETRON [Concomitant]
     Active Substance: ONDANSETRON
     Indication: Chemotherapy side effect prophylaxis
     Dates: start: 20240730, end: 20240730
  51. ONDANSETRON [Concomitant]
     Active Substance: ONDANSETRON
     Indication: Chemotherapy side effect prophylaxis
     Dates: start: 20240820, end: 20240820
  52. ONDANSETRON [Concomitant]
     Active Substance: ONDANSETRON
     Indication: Chemotherapy side effect prophylaxis
     Dates: start: 20240924, end: 20240924
  53. ONDANSETRON [Concomitant]
     Active Substance: ONDANSETRON
     Indication: Chemotherapy side effect prophylaxis
     Dates: start: 20241008, end: 20241008
  54. ATROPINE [Concomitant]
     Active Substance: ATROPINE
     Indication: Chemotherapy side effect prophylaxis
     Dates: start: 20240527, end: 20240527
  55. ATROPINE [Concomitant]
     Active Substance: ATROPINE
     Indication: Chemotherapy side effect prophylaxis
     Dates: start: 20240610, end: 20240610
  56. ATROPINE [Concomitant]
     Active Substance: ATROPINE
     Indication: Chemotherapy side effect prophylaxis
     Dates: start: 20240624, end: 20240624
  57. ATROPINE [Concomitant]
     Active Substance: ATROPINE
     Indication: Chemotherapy side effect prophylaxis
     Dates: start: 20240730, end: 20240730
  58. ATROPINE [Concomitant]
     Active Substance: ATROPINE
     Indication: Chemotherapy side effect prophylaxis
     Dates: start: 20240820, end: 20240820
  59. ATROPINE [Concomitant]
     Active Substance: ATROPINE
     Indication: Chemotherapy side effect prophylaxis
     Dates: start: 20240924, end: 20240924
  60. ATROPINE [Concomitant]
     Active Substance: ATROPINE
     Indication: Chemotherapy side effect prophylaxis
     Dates: start: 20241008, end: 20241008
  61. IRINOTECAN [Suspect]
     Active Substance: IRINOTECAN
     Indication: Adenocarcinoma pancreas
     Dates: start: 20240506, end: 20240506
  62. IRINOTECAN [Suspect]
     Active Substance: IRINOTECAN
     Indication: Adenocarcinoma pancreas
     Dates: start: 20240610, end: 20240610
  63. IRINOTECAN [Suspect]
     Active Substance: IRINOTECAN
     Indication: Adenocarcinoma pancreas
     Dates: start: 20240624, end: 20240624
  64. IRINOTECAN [Suspect]
     Active Substance: IRINOTECAN
     Indication: Adenocarcinoma pancreas
     Dates: start: 20240730, end: 20240730
  65. IRINOTECAN [Suspect]
     Active Substance: IRINOTECAN
     Indication: Adenocarcinoma pancreas
     Dates: start: 20240820, end: 20240820
  66. IRINOTECAN [Suspect]
     Active Substance: IRINOTECAN
     Indication: Adenocarcinoma pancreas
     Dates: start: 20240924, end: 20240924
  67. IRINOTECAN [Suspect]
     Active Substance: IRINOTECAN
     Indication: Adenocarcinoma pancreas
     Dates: start: 20241008, end: 20241008
  68. OXALIPLATIN [Suspect]
     Active Substance: OXALIPLATIN
     Indication: Adenocarcinoma pancreas
     Dates: start: 20240527, end: 20240527
  69. OXALIPLATIN [Suspect]
     Active Substance: OXALIPLATIN
     Indication: Adenocarcinoma pancreas
     Dates: start: 20240610, end: 20240610
  70. OXALIPLATIN [Suspect]
     Active Substance: OXALIPLATIN
     Indication: Adenocarcinoma pancreas
     Dates: start: 20240624, end: 20240624
  71. OXALIPLATIN [Suspect]
     Active Substance: OXALIPLATIN
     Indication: Adenocarcinoma pancreas
     Dates: start: 20240730, end: 20240730
  72. OXALIPLATIN [Suspect]
     Active Substance: OXALIPLATIN
     Indication: Adenocarcinoma pancreas
     Dates: start: 20240820, end: 20240820
  73. OXALIPLATIN [Suspect]
     Active Substance: OXALIPLATIN
     Indication: Adenocarcinoma pancreas
     Dates: start: 20240924, end: 20240924
  74. OXALIPLATIN [Suspect]
     Active Substance: OXALIPLATIN
     Indication: Adenocarcinoma pancreas
     Dates: start: 20241008, end: 20241008

REACTIONS (1)
  - Salivary hypersecretion [Recovered/Resolved]

NARRATIVE: CASE EVENT DATE: 20240701
